FAERS Safety Report 24059603 (Version 1)
Quarter: 2024Q3

REPORT INFORMATION
  Report Type: Spontaneous
  Country: IR (occurrence: IR)
  Receive Date: 20240708
  Receipt Date: 20240708
  Transmission Date: 20241017
  Serious: Yes (Hospitalization)
  Sender: MYLAN
  Company Number: IR-MYLANLABS-2024M1062266

PATIENT
  Age: 18 Year
  Sex: Female

DRUGS (10)
  1. ETOPOSIDE [Suspect]
     Active Substance: ETOPOSIDE
     Indication: Ewing^s sarcoma
     Dosage: 100 MILLIGRAM/SQ. METER,VAC/IE CHEMOTHERAPY REGIMEN ON DAY?1-5
     Route: 065
  2. ETOPOSIDE [Suspect]
     Active Substance: ETOPOSIDE
     Indication: Primitive neuroectodermal tumour
  3. VINCRISTINE [Suspect]
     Active Substance: VINCRISTINE
     Indication: Ewing^s sarcoma
     Dosage: 2 MILLIGRAM/SQ. METER,VAC/IE CHEMOTHERAPY REGIMEN ON DAY1
     Route: 065
  4. VINCRISTINE [Suspect]
     Active Substance: VINCRISTINE
     Indication: Primitive neuroectodermal tumour
  5. DOXORUBICIN [Suspect]
     Active Substance: DOXORUBICIN
     Indication: Ewing^s sarcoma
     Dosage: 37.5 MILLIGRAM/SQ. METER,VAC/IE CHEMOTHERAPY REGIMEN ON DAY1 AND 2
     Route: 065
  6. DOXORUBICIN [Suspect]
     Active Substance: DOXORUBICIN
     Indication: Primitive neuroectodermal tumour
  7. CYCLOPHOSPHAMIDE [Suspect]
     Active Substance: CYCLOPHOSPHAMIDE
     Indication: Ewing^s sarcoma
     Dosage: 1200 MILLIGRAM/SQ. METER,VAC/IE CHEMOTHERAPY REGIMEN ON DAY?1 IN WEEKS?1-5-9-15-17
     Route: 065
  8. CYCLOPHOSPHAMIDE [Suspect]
     Active Substance: CYCLOPHOSPHAMIDE
     Indication: Primitive neuroectodermal tumour
  9. IFOSFAMIDE [Suspect]
     Active Substance: IFOSFAMIDE
     Indication: Ewing^s sarcoma
     Dosage: 1800 MILLIGRAM/SQ. METER,VAC/IE CHEMOTHERAPY REGIMEN ON DAY?1-5
     Route: 065
  10. IFOSFAMIDE [Suspect]
     Active Substance: IFOSFAMIDE
     Indication: Primitive neuroectodermal tumour

REACTIONS (7)
  - Cardiotoxicity [Recovering/Resolving]
  - Myocarditis [Recovering/Resolving]
  - Ventricular hypokinesia [Recovering/Resolving]
  - Mitral valve incompetence [Recovering/Resolving]
  - Right ventricular dysfunction [Recovering/Resolving]
  - Left ventricular dysfunction [Recovering/Resolving]
  - Tachypnoea [Recovering/Resolving]
